FAERS Safety Report 7150883-X (Version None)
Quarter: 2010Q4

REPORT INFORMATION
  Report Type: 
  Country: None (occurrence: None)
  Receive Date: 20101210
  Receipt Date: 20101130
  Transmission Date: 20110411
  Serious: Yes (Other)
  Sender: FDA-Public Use
  Company Number: DE-ROCHE-746174

PATIENT
  Sex: Male

DRUGS (2)
  1. AVASTIN [Suspect]
     Route: 065
     Dates: start: 20100501, end: 20100901
  2. FOLFOX REGIMEN [Concomitant]
     Dates: start: 20100501

REACTIONS (1)
  - BRADYCARDIA [None]
